FAERS Safety Report 8360138-3 (Version None)
Quarter: 2012Q2

REPORT INFORMATION
  Report Type: 
  Country: None (occurrence: None)
  Receive Date: 20120515
  Receipt Date: 20120423
  Transmission Date: 20120825
  Serious: Yes (Life-Threatening, Hospitalization)
  Sender: FDA-Public Use
  Company Number: GR-AMGEN-GRCSP2012024649

PATIENT
  Age: 75 Year
  Sex: Female
  Weight: 70 kg

DRUGS (9)
  1. KAYEXALATE [Concomitant]
  2. LACITENS [Concomitant]
  3. MEDROL [Concomitant]
  4. PROLIA [Suspect]
     Indication: OSTEOPOROSIS
     Dosage: 60 MG, Q6MO
     Route: 058
     Dates: start: 20120323
  5. RENVELA [Concomitant]
  6. ARANESP [Concomitant]
  7. CALCIORAL D3 [Concomitant]
     Indication: OSTEOPOROSIS
     Dosage: 500 UNK, UNK
     Dates: start: 20120323
  8. FERROUS SULFATE TAB [Concomitant]
  9. SOLURIC [Concomitant]

REACTIONS (4)
  - DECREASED APPETITE [None]
  - HYPOAESTHESIA [None]
  - HYPOCALCAEMIA [None]
  - ASTHENIA [None]
